FAERS Safety Report 13284411 (Version 2)
Quarter: 2018Q2

REPORT INFORMATION
  Report Type: Report from Study
  Country: NL (occurrence: NL)
  Receive Date: 20170301
  Receipt Date: 20180530
  Transmission Date: 20180711
  Serious: Yes (Hospitalization, Other)
  Sender: FDA-Public Use
  Company Number: NL-AMGEN-NLDSL2017029352

PATIENT
  Age: 74 Year
  Sex: Female

DRUGS (2)
  1. REPATHA [Suspect]
     Active Substance: EVOLOCUMAB
     Indication: HYPERCHOLESTEROLAEMIA
     Dosage: 140 MG/ML, Q2WK
     Route: 058
  2. REPATHA [Suspect]
     Active Substance: EVOLOCUMAB
     Indication: CARDIOVASCULAR DISORDER

REACTIONS (5)
  - Cystitis [Recovered/Resolved]
  - Myocardial infarction [Recovered/Resolved]
  - Pneumonia [Recovered/Resolved]
  - Iron deficiency [Recovered/Resolved]
  - Living in residential institution [Not Recovered/Not Resolved]

NARRATIVE: CASE EVENT DATE: 20161218
